FAERS Safety Report 16875101 (Version 3)
Quarter: 2019Q4

REPORT INFORMATION
  Report Type: Spontaneous
  Country: US (occurrence: US)
  Receive Date: 20191001
  Receipt Date: 20191014
  Transmission Date: 20200122
  Serious: Yes (Hospitalization)
  Sender: FDA-Public Use
  Company Number: US-ACTELION-A-NJ2019-196141

PATIENT
  Age: 63 Year
  Sex: Male

DRUGS (2)
  1. OPSUMIT [Suspect]
     Active Substance: MACITENTAN
     Dosage: 10 MG, QD
     Route: 048
  2. OPSUMIT [Suspect]
     Active Substance: MACITENTAN
     Indication: PULMONARY ARTERIAL HYPERTENSION
     Dosage: 10 MG, QD
     Route: 048
     Dates: start: 20190830, end: 20190917

REACTIONS (6)
  - Fluid retention [Unknown]
  - Hypotension [Unknown]
  - Dyspnoea [Unknown]
  - Peripheral swelling [Unknown]
  - Pulmonary oedema [Unknown]
  - Oedema [Unknown]

NARRATIVE: CASE EVENT DATE: 201909
